FAERS Safety Report 9749423 (Version 2)
Quarter: 2014Q2

REPORT INFORMATION
  Report Type: Spontaneous
  Country: US (occurrence: US)
  Receive Date: 20131212
  Receipt Date: 20140421
  Transmission Date: 20141212
  Serious: No
  Sender: FDA-Public Use
  Company Number: US-BIOGENIDEC-2013BI093366

PATIENT
  Age: 56 Year
  Sex: Female
  Weight: 81 kg

DRUGS (18)
  1. TECFIDERA [Suspect]
     Indication: MULTIPLE SCLEROSIS
     Route: 048
     Dates: start: 20130618
  2. TECFIDERA [Suspect]
     Indication: MULTIPLE SCLEROSIS
     Route: 048
     Dates: start: 2013
  3. AMPYRA [Concomitant]
  4. ARICEPT [Concomitant]
  5. ASPIRIN [Concomitant]
  6. ECOTRIN [Concomitant]
  7. FISH OIL [Concomitant]
  8. LEXAPRO [Concomitant]
  9. VITAMIN B12 [Concomitant]
  10. ECITALOPRAM [Concomitant]
  11. IPRATROPIUM [Concomitant]
  12. AMANTADINE [Concomitant]
  13. DONEZAPRIL [Concomitant]
  14. CIPRO [Concomitant]
  15. TRIAMCINOLONE [Concomitant]
  16. CORDRAN [Concomitant]
  17. SILENOR [Concomitant]
  18. ADA [Concomitant]

REACTIONS (7)
  - Cough [Unknown]
  - Paraesthesia [Unknown]
  - Pain in extremity [Unknown]
  - Balance disorder [Unknown]
  - Fatigue [Unknown]
  - Fall [Recovered/Resolved]
  - Hot flush [Unknown]
